FAERS Safety Report 4498586-4 (Version None)
Quarter: 2004Q4

REPORT INFORMATION
  Report Type: 
  Country: None (occurrence: None)
  Receive Date: 20041108
  Receipt Date: 20041025
  Transmission Date: 20050328
  Serious: Yes (Hospitalization)
  Sender: FDA-Public Use
  Company Number: 2004240923US

PATIENT
  Age: 43 Year
  Sex: Male

DRUGS (2)
  1. IDAMYCIN [Suspect]
     Indication: ACUTE MYELOID LEUKAEMIA
  2. CYTARABINE [Suspect]
     Indication: ACUTE MYELOID LEUKAEMIA

REACTIONS (12)
  - DERMATITIS BULLOUS [None]
  - EPIDERMOLYSIS [None]
  - HAEMODIALYSIS [None]
  - HYPERTHERMIA [None]
  - HYPOXIA [None]
  - NECROSIS [None]
  - RASH ERYTHEMATOUS [None]
  - RASH MACULAR [None]
  - RENAL FAILURE [None]
  - RESPIRATORY FAILURE [None]
  - SEPTIC SHOCK [None]
  - SWEAT GLAND DISORDER [None]
